APPROVED DRUG PRODUCT: LANOXIN PEDIATRIC
Active Ingredient: DIGOXIN
Strength: 0.1MG/ML
Dosage Form/Route: INJECTABLE;INJECTION
Application: N009330 | Product #004
Applicant: COVIS PHARMA GMBH
Approved: Approved Prior to Jan 1, 1982 | RLD: Yes | RS: Yes | Type: RX